FAERS Safety Report 5313701-8 (Version None)
Quarter: 2007Q2

REPORT INFORMATION
  Report Type: 
  Country: None (occurrence: None)
  Receive Date: 20070430
  Receipt Date: 20070430
  Transmission Date: 20071010
  Serious: No
  Sender: FDA-Public Use
  Company Number: None

PATIENT
  Age: 33 Year
  Sex: Female

DRUGS (3)
  1. CEREFOLIN [Suspect]
     Dosage: TABLET  BOTTLE 90 TABLETS
  2. CLOMIPHENE CITRATE [Suspect]
     Dosage: TABLET  BOTTLE 30
  3. CLOMIPHENE CITRATE [Suspect]
     Dosage: TABLET

REACTIONS (4)
  - DRUG DISPENSING ERROR [None]
  - DRUG EXPOSURE DURING PREGNANCY [None]
  - MEDICATION ERROR [None]
  - WRONG DRUG ADMINISTERED [None]
